FAERS Safety Report 16526234 (Version 1)
Quarter: 2019Q3

REPORT INFORMATION
  Report Type: Spontaneous
  Country: IT (occurrence: IT)
  Receive Date: 20190703
  Receipt Date: 20190703
  Transmission Date: 20191004
  Serious: Yes (Other)
  Sender: FDA-Public Use
  Company Number: IT-SA-2019SA170087

PATIENT
  Age: 84 Year
  Sex: Female

DRUGS (10)
  1. APIDRA [Suspect]
     Active Substance: INSULIN GLULISINE
     Indication: DIABETES MELLITUS
     Dosage: 19 IU, QD
     Route: 058
     Dates: start: 20180101, end: 20180608
  2. ACETYLSALICYLIC ACID [Concomitant]
     Active Substance: ASPIRIN
     Route: 065
  3. KANRENOL [Concomitant]
     Active Substance: CANRENOATE POTASSIUM
     Route: 065
  4. PANTOPRAZOLE [Concomitant]
     Active Substance: PANTOPRAZOLE
     Route: 065
  5. TORVAST [Concomitant]
     Active Substance: ATORVASTATIN
     Route: 065
  6. FUROSEMIDE. [Concomitant]
     Active Substance: FUROSEMIDE
     Route: 065
  7. TRIATEC [HYDROCHLOROTHIAZIDE;RAMIPRIL] [Concomitant]
     Route: 065
  8. AMIODARONE HYDROCHLORIDE. [Concomitant]
     Active Substance: AMIODARONE HYDROCHLORIDE
     Route: 065
  9. ZYLORIC [Concomitant]
     Active Substance: ALLOPURINOL
     Route: 065
  10. BISOPROLOL FUMARATE. [Concomitant]
     Active Substance: BISOPROLOL FUMARATE
     Route: 065

REACTIONS (2)
  - Syncope [Recovering/Resolving]
  - Hypoglycaemia [Recovering/Resolving]

NARRATIVE: CASE EVENT DATE: 20180608
